FAERS Safety Report 10179381 (Version 1)
Quarter: 2014Q2

REPORT INFORMATION
  Report Type: Spontaneous
  Country: US (occurrence: None)
  Receive Date: 20140515
  Receipt Date: 20140515
  Transmission Date: 20141212
  Serious: Yes (Death)
  Sender: FDA-Public Use
  Company Number: UTC-048476

PATIENT
  Age: 55 Year
  Sex: Female
  Weight: 65.31 kg

DRUGS (5)
  1. TYVASO [Suspect]
     Indication: PULMONARY ARTERIAL HYPERTENSION
     Dosage: 18 TO 54 MCG (4 IN 1 D), INHALATION
     Route: 055
     Dates: start: 20131025
  2. WARFARIN (WARFARIN) (UNKNOWN) [Concomitant]
  3. SILDENAFIL (SILDENAFIL) (UNKNOWN) [Concomitant]
  4. REVATIO (SILDENAFIL CITRATE) (UNKNOWN) [Concomitant]
  5. LETAIRIS (AMBRISENTAN) (UNKNOWN) [Concomitant]

REACTIONS (1)
  - Death [None]
